FAERS Safety Report 21842274 (Version 1)
Quarter: 2023Q1

REPORT INFORMATION
  Report Type: Spontaneous
  Country: US (occurrence: None)
  Receive Date: 20230110
  Receipt Date: 20230110
  Transmission Date: 20230418
  Serious: No
  Sender: FDA-Public Use
  Company Number: US-INFO-20220112

PATIENT
  Sex: Female

DRUGS (1)
  1. ROPIVACAINE [Suspect]
     Active Substance: ROPIVACAINE
     Indication: Labour pain
     Dosage: ()
     Route: 008

REACTIONS (1)
  - Drug ineffective [Recovered/Resolved]
